FAERS Safety Report 6413804-0 (Version None)
Quarter: 2009Q4

REPORT INFORMATION
  Report Type: 
  Country: None (occurrence: None)
  Receive Date: 20091022
  Receipt Date: 20091022
  Transmission Date: 20100525
  Serious: Yes (Hospitalization, Other)
  Sender: FDA-Public Use
  Company Number: None

PATIENT
  Age: 29 Year
  Sex: Male
  Weight: 72.6 kg

DRUGS (1)
  1. TRI-METHYL-X (BODY-BUILD) [Suspect]
     Dosage: TWO PILLS BID PO
     Route: 048
     Dates: start: 20090301, end: 20090331

REACTIONS (3)
  - DIARRHOEA [None]
  - JAUNDICE [None]
  - PRURITUS [None]
